FAERS Safety Report 17736731 (Version 4)
Quarter: 2020Q4

REPORT INFORMATION
  Report Type: Spontaneous
  Country: FR (occurrence: FR)
  Receive Date: 20200501
  Receipt Date: 20201003
  Transmission Date: 20210113
  Serious: Yes (Hospitalization, Other)
  Sender: FDA-Public Use
  Company Number: FR-AUROBINDO-AUR-APL-2020-021547

PATIENT
  Age: 72 Year
  Sex: Male
  Weight: 71 kg

DRUGS (19)
  1. SPECIAFOLDINE [Concomitant]
     Active Substance: FOLIC ACID
     Indication: FOLATE DEFICIENCY
     Dosage: 5 MILLIGRAM, 3 TIMES A WEEK (15 MILLIGRAM, EVERY WEEK)
     Route: 048
     Dates: start: 20190802
  2. BACTRIM [Concomitant]
     Active Substance: SULFAMETHOXAZOLE\TRIMETHOPRIM
     Indication: INFECTION PROPHYLAXIS
     Dosage: 1 DOSAGE FORM
     Route: 048
     Dates: start: 202001
  3. BACTRIM [Concomitant]
     Active Substance: SULFAMETHOXAZOLE\TRIMETHOPRIM
     Dosage: 3 IN, EVERY WEEK
     Route: 048
     Dates: start: 202001
  4. CARMUSTINE. [Suspect]
     Active Substance: CARMUSTINE
     Indication: B-CELL LYMPHOMA
     Dosage: 580 MILLIGRAM, ONCE A DAY
     Route: 042
     Dates: start: 20191010
  5. RITUXIMAB. [Suspect]
     Active Substance: RITUXIMAB
     Indication: B-CELL LYMPHOMA
     Dosage: 740 MILLIGRAM,1 DOSE 3 WEEKS (710 MILLIGRAM, EVERY 3 WEEKS)
     Route: 042
     Dates: start: 20190802
  6. AVODART [Concomitant]
     Active Substance: DUTASTERIDE
     Indication: BENIGN PROSTATIC HYPERPLASIA
     Dosage: 5 MILLIGRAM
     Route: 048
  7. CYTARABINE. [Suspect]
     Active Substance: CYTARABINE
     Dosage: 390 MILLIGRAM, TWO TIMES A DAY
     Route: 042
     Dates: start: 20191010
  8. ZELITREX [Concomitant]
     Active Substance: VALACYCLOVIR HYDROCHLORIDE
     Indication: INFECTION PROPHYLAXIS
     Dosage: 1000 MILLIGRAM, TWO TIMES A DAY
     Route: 048
     Dates: start: 20190801
  9. DEXAMETHASONE. [Suspect]
     Active Substance: DEXAMETHASONE
     Indication: B-CELL LYMPHOMA
     Dosage: 160 MILLIGRAM, ONCE A DAY,4 DOSE DAILY PER 21-DAY CYCLE
     Route: 048
     Dates: start: 20190802
  10. CISPLATIN. [Suspect]
     Active Substance: CISPLATIN
     Indication: B-CELL LYMPHOMA
     Dosage: 190 MILLIGRAM, 1 DOSE 3 WEEKS
     Route: 042
     Dates: start: 20190802
  11. ZARZIO [Concomitant]
     Active Substance: FILGRASTIM
     Dosage: 480 MICROGRAM, THREE TIMES A WEEK (1440 MICROGRAM, EVERY WEEK)
     Route: 065
     Dates: start: 20200414
  12. ZARZIO [Concomitant]
     Active Substance: FILGRASTIM
     Dosage: 480 MICROGRAM, EVERY WEEK
     Route: 058
     Dates: start: 20200311, end: 20200412
  13. MELPHALAN INJECTION [Suspect]
     Active Substance: MELPHALAN
     Indication: B-CELL LYMPHOMA
     Dosage: 270 MILLIGRAM, ONCE A DAY
     Route: 042
     Dates: start: 20191014
  14. AVODART [Concomitant]
     Active Substance: DUTASTERIDE
     Dosage: 0.5 MILLIGRAM, ONCE A DAY
     Route: 048
  15. BISOPROLOL [Concomitant]
     Active Substance: BISOPROLOL
     Indication: HYPERTENSION
     Dosage: 10 MILLIGRAM, ONCE A DAY
     Route: 048
  16. LANSOPRAZOLE. [Concomitant]
     Active Substance: LANSOPRAZOLE
     Indication: GASTROOESOPHAGEAL REFLUX DISEASE
     Dosage: 30 MILLIGRAM, ONCE A DAY
     Route: 048
     Dates: start: 20190928
  17. CYTARABINE. [Suspect]
     Active Substance: CYTARABINE
     Indication: B-CELL LYMPHOMA
     Dosage: 3800 MILLIGRAM, TWO TIMES A DAY,2 DOSE DAILY PER 21-DAY CYCLE
     Route: 042
     Dates: start: 20190802, end: 20190918
  18. ETOPOSIDE. [Suspect]
     Active Substance: ETOPOSIDE
     Indication: B-CELL LYMPHOMA
     Dosage: 190 MILLIGRAM, TWO TIMES A DAY
     Route: 042
     Dates: start: 20191010
  19. ZARZIO [Concomitant]
     Active Substance: FILGRASTIM
     Indication: NEUTROPENIA
     Dosage: 480 MILLIGRAM
     Route: 058
     Dates: start: 20200311, end: 20200412

REACTIONS (2)
  - Off label use [Unknown]
  - Bronchopulmonary aspergillosis [Recovered/Resolved]

NARRATIVE: CASE EVENT DATE: 20200407
